FAERS Safety Report 11674190 (Version 8)
Quarter: 2016Q3

REPORT INFORMATION
  Report Type: Report from Study
  Country: CA (occurrence: CA)
  Receive Date: 20151028
  Receipt Date: 20160902
  Transmission Date: 20161109
  Serious: Yes (Hospitalization, Other)
  Sender: FDA-Public Use
  Company Number: CA-ROCHE-1651028

PATIENT
  Age: 59 Year
  Sex: Female

DRUGS (7)
  1. CLONAZEPAM. [Concomitant]
     Active Substance: CLONAZEPAM
  2. VAGIFEM [Concomitant]
     Active Substance: ESTRADIOL
  3. LIPITOR [Concomitant]
     Active Substance: ATORVASTATIN CALCIUM
  4. METHYLPREDNISOLONE. [Concomitant]
     Active Substance: METHYLPREDNISOLONE
     Indication: PREMEDICATION
     Route: 042
     Dates: start: 20150804, end: 20160711
  5. ACETAMINOPHEN. [Concomitant]
     Active Substance: ACETAMINOPHEN
     Indication: PREMEDICATION
     Route: 048
     Dates: start: 20150804, end: 20160711
  6. RITUXAN [Suspect]
     Active Substance: RITUXIMAB
     Indication: SJOGREN^S SYNDROME
     Dosage: MOST RECENT DOSE OF RITUXIMAB: 11/JUL/2016
     Route: 042
     Dates: start: 20150804, end: 20160711
  7. DIPHENHYDRAMINE HCL [Concomitant]
     Active Substance: DIPHENHYDRAMINE HYDROCHLORIDE
     Indication: PREMEDICATION
     Route: 048
     Dates: start: 20150804, end: 20160711

REACTIONS (15)
  - Erythema [Recovering/Resolving]
  - Atrophic vulvovaginitis [Not Recovered/Not Resolved]
  - Cellulitis [Not Recovered/Not Resolved]
  - Thrombosis [Recovered/Resolved]
  - Musculoskeletal stiffness [Recovering/Resolving]
  - Feeling hot [Recovering/Resolving]
  - Pruritus [Recovering/Resolving]
  - Vaginal discharge [Not Recovered/Not Resolved]
  - Chills [Recovering/Resolving]
  - Urethritis [Not Recovered/Not Resolved]
  - Lymphoedema [Recovering/Resolving]
  - Limb discomfort [Recovering/Resolving]
  - Peripheral swelling [Recovering/Resolving]
  - Pyrexia [Recovering/Resolving]
  - Vaginitis bacterial [Not Recovered/Not Resolved]

NARRATIVE: CASE EVENT DATE: 20160707
